FAERS Safety Report 9231569 (Version 2)
Quarter: 2013Q2

REPORT INFORMATION
  Report Type: Report from Study
  Country: FR (occurrence: FR)
  Receive Date: 20130415
  Receipt Date: 20130430
  Transmission Date: 20140414
  Serious: Yes (Death, Life-Threatening, Other)
  Sender: FDA-Public Use
  Company Number: FR-009507513-1304FRA004420

PATIENT
  Age: 66 Year
  Sex: Male
  Weight: 58.3 kg

DRUGS (9)
  1. CASPOFUNGIN ACETATE [Suspect]
     Indication: PRODUCT USED FOR UNKNOWN INDICATION
     Dosage: 50.00 MG, QD
     Route: 042
     Dates: start: 20130323, end: 20130407
  2. TAZOCILLINE [Concomitant]
     Dosage: 4 G, QD
     Route: 042
     Dates: start: 20130208, end: 20130317
  3. TIENAM 500MG/500MG, POUDRE POUR PERFUSION [Concomitant]
     Dosage: 500 MG, UNK
     Route: 042
     Dates: start: 20130317
  4. VANCOMYCIN [Concomitant]
     Dosage: 1000 MG, QD
     Route: 042
     Dates: start: 20130318, end: 20130318
  5. VANCOMYCIN [Concomitant]
     Dosage: 1500 MG, QD
     Route: 042
     Dates: start: 20130319, end: 20130320
  6. VANCOMYCIN [Concomitant]
     Dosage: 2500 MG, QD
     Route: 042
     Dates: start: 20130325, end: 20130403
  7. GENTAMICINE [Concomitant]
     Dosage: 240 MG, QD
     Route: 042
     Dates: start: 20130319, end: 20130319
  8. GENTAMICINE [Concomitant]
     Dosage: 360 MG, QD
     Route: 042
     Dates: start: 20130320, end: 20130320
  9. GENTAMICINE [Concomitant]
     Dosage: 540 MG, QD
     Route: 042
     Dates: start: 20130321, end: 20130321

REACTIONS (5)
  - Septic shock [Fatal]
  - Geotrichum infection [Fatal]
  - Hepatitis [Not Recovered/Not Resolved]
  - Enterococcal bacteraemia [Not Recovered/Not Resolved]
  - Colitis [Not Recovered/Not Resolved]
